FAERS Safety Report 8895702 (Version 1)
Quarter: 2012Q4

REPORT INFORMATION
  Report Type: Report from Study
  Country: US (occurrence: US)
  Receive Date: 20121108
  Receipt Date: 20121108
  Transmission Date: 20130627
  Serious: Yes (Other)
  Sender: FDA-Public Use
  Company Number: US-JNJFOC-20121103358

PATIENT
  Sex: Female
  Weight: 63.96 kg

DRUGS (13)
  1. STELARA [Suspect]
     Indication: PSORIASIS
     Route: 058
     Dates: start: 201203, end: 201204
  2. RISPERDAL [Suspect]
     Indication: DEPRESSION
     Route: 048
     Dates: start: 2011
  3. RISPERDAL [Suspect]
     Indication: SLEEP DISORDER
     Route: 048
     Dates: start: 2011
  4. VITAMINS NOS [Concomitant]
  5. IBUPROFEN [Concomitant]
     Indication: PAIN
     Route: 048
     Dates: start: 2011
  6. METOPROLOL [Concomitant]
     Indication: BLOOD PRESSURE ABNORMAL
     Route: 048
     Dates: start: 1992
  7. HCTZ [Concomitant]
     Indication: BLOOD PRESSURE ABNORMAL
     Route: 048
     Dates: start: 1992
  8. TRAZODONE [Concomitant]
     Indication: SLEEP DISORDER
     Route: 048
     Dates: start: 2011
  9. LORATADINE [Concomitant]
     Indication: MULTIPLE ALLERGIES
     Route: 048
     Dates: start: 2012
  10. DEXILANT [Concomitant]
     Indication: GASTROOESOPHAGEAL REFLUX DISEASE
     Route: 048
     Dates: start: 2012
  11. NASONEX [Concomitant]
     Indication: MULTIPLE ALLERGIES
     Route: 045
     Dates: start: 2012
  12. ZOLOFT [Concomitant]
     Indication: ANXIETY
     Route: 048
     Dates: start: 1997
  13. ZOLOFT [Concomitant]
     Indication: DEPRESSION
     Route: 048
     Dates: start: 1997

REACTIONS (2)
  - Anxiety [Not Recovered/Not Resolved]
  - Psoriasis [Not Recovered/Not Resolved]
